FAERS Safety Report 9175944 (Version 2)
Quarter: 2013Q2

REPORT INFORMATION
  Report Type: Report from Study
  Country: CA (occurrence: CA)
  Receive Date: 20130320
  Receipt Date: 20130405
  Transmission Date: 20140414
  Serious: Yes (Life-Threatening, Hospitalization, Other)
  Sender: FDA-Public Use
  Company Number: CA-009507513-1211CAN001481

PATIENT
  Age: 63 Year
  Sex: Female
  Weight: 65 kg

DRUGS (10)
  1. RIBAVIRIN [Suspect]
     Indication: CHRONIC HEPATITIS C
     Dosage: 200 MG, BID
     Route: 048
     Dates: start: 20120710, end: 20121224
  2. RO5024048 [Suspect]
     Indication: CHRONIC HEPATITIS C
     Dosage: 500 MG, BID
     Route: 048
     Dates: start: 20120710, end: 20121224
  3. TELAPREVIR [Suspect]
     Indication: CHRONIC HEPATITIS C
     Dosage: 750 MG, TID
     Route: 048
     Dates: start: 20120710, end: 20121010
  4. PEGINTERFERON ALFA-2A [Suspect]
     Indication: CHRONIC HEPATITIS C
     Dosage: 180 MICROGRAM, UNK
     Route: 058
     Dates: start: 20120710, end: 20121218
  5. EPREX [Concomitant]
     Indication: ANAEMIA
     Dosage: UNK
     Dates: start: 20121023, end: 20121024
  6. EPREX [Concomitant]
     Dosage: UNK
     Dates: start: 20121030, end: 20121031
  7. BISOPROLOL [Concomitant]
     Indication: HYPERTENSION
     Dosage: UNK
     Dates: start: 20120629, end: 20121028
  8. HYDROCHLOROTHIAZIDE [Concomitant]
     Indication: HYPERTENSION
     Dosage: UNK
     Dates: start: 20120731, end: 20121028
  9. ACETAMINOPHEN [Concomitant]
     Dosage: UNK
     Dates: start: 20120713, end: 20121106
  10. NIFEDIPINE [Concomitant]
     Indication: HYPERTENSION
     Dosage: UNK
     Dates: start: 20130204

REACTIONS (2)
  - Atrioventricular block second degree [Not Recovered/Not Resolved]
  - Atrioventricular block complete [Not Recovered/Not Resolved]
